FAERS Safety Report 20951064 (Version 4)
Quarter: 2023Q1

REPORT INFORMATION
  Report Type: Spontaneous
  Country: US (occurrence: US)
  Receive Date: 20220613
  Receipt Date: 20230306
  Transmission Date: 20230418
  Serious: No
  Sender: FDA-Public Use
  Company Number: US-BRISTOL-MYERS SQUIBB COMPANY-2022-042229

PATIENT
  Age: 59 Year
  Sex: Female

DRUGS (3)
  1. ORENCIA [Suspect]
     Active Substance: ABATACEPT
     Indication: Rheumatoid arthritis
     Route: 058
     Dates: start: 20220505
  2. CELECOXIB [Concomitant]
     Active Substance: CELECOXIB
     Indication: Product used for unknown indication
     Route: 048
  3. NICODERM CQ [Concomitant]
     Active Substance: NICOTINE
     Indication: Product used for unknown indication

REACTIONS (3)
  - Pain [Unknown]
  - Visual impairment [Unknown]
  - Vision blurred [Recovering/Resolving]
